FAERS Safety Report 11184227 (Version 1)
Quarter: 2015Q2

REPORT INFORMATION
  Report Type: Spontaneous
  Country: PT (occurrence: None)
  Receive Date: 20150610
  Receipt Date: 20150610
  Transmission Date: 20150821
  Serious: Yes (Life-Threatening, Hospitalization)
  Sender: FDA-Public Use
  Company Number: FK201502522

PATIENT
  Sex: Female

DRUGS (4)
  1. PROPOFOL 1% FRESENIUS (PROPOFOL) (PROPOFOL) [Suspect]
     Active Substance: PROPOFOL
     Indication: GENERAL ANAESTHESIA
     Dosage: INTRAVENOUS (NOT OTHERWISE SPECIFIED)
     Route: 042
     Dates: start: 20150505, end: 20150505
  2. PROTAMINA (PROTAMINE SULFATE) [Concomitant]
  3. SEVOFLURANO (SEVOFLURANE) [Concomitant]
  4. FENTANIL (FENTANYL) [Concomitant]

REACTIONS (5)
  - Hypotension [None]
  - Peripheral ischaemia [None]
  - Drug interaction [None]
  - Bradycardia [None]
  - Product quality issue [None]

NARRATIVE: CASE EVENT DATE: 20150505
